FAERS Safety Report 4276023-2 (Version None)
Quarter: 2004Q1

REPORT INFORMATION
  Report Type: 
  Country: None (occurrence: None)
  Receive Date: 20040121
  Receipt Date: 20030618
  Transmission Date: 20041129
  Serious: No
  Sender: FDA-Public Use
  Company Number: US-GLAXOSMITHKLINE-A0413099A

PATIENT
  Age: 48 Year
  Sex: Female

DRUGS (1)
  1. VALTREX [Suspect]
     Dosage: 500MG PER DAY
     Route: 048
     Dates: start: 20020528

REACTIONS (3)
  - APHTHOUS STOMATITIS [None]
  - DRY MOUTH [None]
  - TONGUE DISCOLOURATION [None]
